FAERS Safety Report 5453788-5 (Version None)
Quarter: 2007Q3

REPORT INFORMATION
  Report Type: 
  Country: None (occurrence: None)
  Receive Date: 20070917
  Receipt Date: 20070913
  Transmission Date: 20080115
  Serious: Yes (Hospitalization)
  Sender: FDA-Public Use
  Company Number: FR-MERCK-0606FRA00081

PATIENT
  Age: 67 Year
  Sex: Female

DRUGS (9)
  1. ZETIA [Suspect]
     Indication: DYSLIPIDAEMIA
     Route: 048
     Dates: start: 20050601, end: 20060601
  2. ZETIA [Suspect]
     Route: 048
     Dates: start: 20061001
  3. FELODIPINE AND METOPROLOL SUCCINATE [Concomitant]
     Indication: HYPERTENSION
     Route: 048
  4. ACETAMINOPHEN AND PROPOXYPHENE HYDROCHLORIDE [Concomitant]
     Route: 048
  5. HYDROCHLOROTHIAZIDE AND LOSARTAN POTASSIUM [Concomitant]
     Indication: HYPERTENSION
     Route: 048
  6. FLUOXETINE HYDROCHLORIDE [Concomitant]
     Route: 048
  7. HYDROXYZINE HYDROCHLORIDE [Concomitant]
     Route: 048
  8. POLYETHYLENE GLYCOL 4000 [Concomitant]
     Indication: CONSTIPATION
     Route: 048
  9. POVIDONE AND STERCULIA [Concomitant]
     Indication: GASTROINTESTINAL DISORDER
     Route: 048

REACTIONS (3)
  - BILIARY COLIC [None]
  - CHOLELITHIASIS [None]
  - GAMMA-GLUTAMYLTRANSFERASE INCREASED [None]
